FAERS Safety Report 9361724 (Version 1)
Quarter: 2013Q2

REPORT INFORMATION
  Report Type: Spontaneous
  Country: US (occurrence: US)
  Receive Date: 20130621
  Receipt Date: 20130621
  Transmission Date: 20140414
  Serious: Yes (Other)
  Sender: FDA-Public Use
  Company Number: US-US-EMD SERONO, INC.-7014588

PATIENT
  Age: 40 Year
  Sex: Female

DRUGS (3)
  1. REBIF [Suspect]
     Indication: MULTIPLE SCLEROSIS
     Route: 058
     Dates: start: 20100323, end: 20100722
  2. KEPPRA [Concomitant]
     Indication: CONVULSION
     Dates: start: 2008, end: 201003
  3. KEPPRA [Concomitant]
     Dates: start: 201003

REACTIONS (3)
  - Convulsion [Recovering/Resolving]
  - Haematocrit decreased [Not Recovered/Not Resolved]
  - White blood cell count decreased [Recovering/Resolving]
